FAERS Safety Report 22234159 (Version 1)
Quarter: 2023Q2

REPORT INFORMATION
  Report Type: Spontaneous
  Country: US (occurrence: US)
  Receive Date: 20230420
  Receipt Date: 20230420
  Transmission Date: 20230722
  Serious: No
  Sender: FDA-Public Use
  Company Number: US-SA-SAC20230419000640

PATIENT
  Age: 52 Year
  Sex: Female
  Weight: 90.7 kg

DRUGS (18)
  1. DUPIXENT [Suspect]
     Active Substance: DUPILUMAB
     Indication: Dermatitis atopic
     Dosage: 300 MG, QOW
     Route: 058
  2. CYCLOBENZAPRINE HYDROCHLORIDE [Concomitant]
     Active Substance: CYCLOBENZAPRINE HYDROCHLORIDE
     Dosage: UNK
  3. DOXYCYCLINE HYCLATE [Concomitant]
     Active Substance: DOXYCYCLINE HYCLATE
     Dosage: UNK
  4. CYANOCOBALAMIN [Concomitant]
     Active Substance: CYANOCOBALAMIN
     Dosage: UNK
  5. TRAZODONE HCL [Concomitant]
     Active Substance: TRAZODONE HYDROCHLORIDE
     Dosage: UNK
  6. HUMIRA [Concomitant]
     Active Substance: ADALIMUMAB
     Dosage: UNK
  7. FUROSEMIDE [Concomitant]
     Active Substance: FUROSEMIDE
     Dosage: UNK
  8. FLUCONAZOLE [Concomitant]
     Active Substance: FLUCONAZOLE
     Dosage: UNK
  9. ISONIAZID [Concomitant]
     Active Substance: ISONIAZID
     Dosage: UNK
  10. MELATONIN [Concomitant]
     Active Substance: MELATONIN
     Dosage: UNK
  11. WEGOVY [Concomitant]
     Active Substance: SEMAGLUTIDE
     Dosage: UNK
  12. VITAMIN D2 [Concomitant]
     Active Substance: ERGOCALCIFEROL
     Dosage: UNK
  13. ESTRADIOL [Concomitant]
     Active Substance: ESTRADIOL
     Dosage: UNK
  14. HYDROCHLOROTHIAZIDE [Concomitant]
     Active Substance: HYDROCHLOROTHIAZIDE
     Dosage: UNK
  15. PRIFTIN [Concomitant]
     Active Substance: RIFAPENTINE
     Dosage: UNK
  16. VITAMIN B6 [Concomitant]
     Active Substance: PYRIDOXINE HYDROCHLORIDE
     Dosage: UNK
  17. GABAPENTIN [Concomitant]
     Active Substance: GABAPENTIN
     Dosage: UNK
  18. TRESIBA [Concomitant]
     Active Substance: INSULIN DEGLUDEC
     Dosage: UNK

REACTIONS (1)
  - Sinus operation [Unknown]

NARRATIVE: CASE EVENT DATE: 20230309
